FAERS Safety Report 24890750 (Version 1)
Quarter: 2025Q1

REPORT INFORMATION
  Report Type: Spontaneous
  Country: CN (occurrence: CN)
  Receive Date: 20250127
  Receipt Date: 20250127
  Transmission Date: 20250409
  Serious: Yes (Other)
  Sender: NOVARTIS
  Company Number: CN-002147023-NVSC2025CN012126

PATIENT
  Sex: Female

DRUGS (1)
  1. LETROZOLE [Suspect]
     Active Substance: LETROZOLE
     Indication: Ovulation induction
     Dosage: 2.5 MG, QD (TAKEN ON3RD TO 5TH DAY OF THE MENSTRUAL CYCLE FOR 5 CONSECUTIVE DAYS)
     Route: 048

REACTIONS (3)
  - Premature labour [Unknown]
  - Maternal exposure before pregnancy [Unknown]
  - Off label use [Unknown]
